FAERS Safety Report 17253409 (Version 1)
Quarter: 2020Q1

REPORT INFORMATION
  Report Type: Report from Study
  Country: US (occurrence: US)
  Receive Date: 20200109
  Receipt Date: 20200109
  Transmission Date: 20200409
  Serious: Yes (Other)
  Sender: FDA-Public Use
  Company Number: US-JNJFOC-20200102896

PATIENT
  Sex: Female

DRUGS (1)
  1. SPRAVATO [Suspect]
     Active Substance: ESKETAMINE
     Indication: PRODUCT USED FOR UNKNOWN INDICATION
     Dates: start: 2019, end: 2019

REACTIONS (4)
  - Drug monitoring procedure not performed [Unknown]
  - Intentional underdose [Unknown]
  - Intentional product misuse [Unknown]
  - Drug diversion [Unknown]

NARRATIVE: CASE EVENT DATE: 2019
